FAERS Safety Report 14211501 (Version 2)
Quarter: 2018Q1

REPORT INFORMATION
  Report Type: Spontaneous
  Country: US (occurrence: US)
  Receive Date: 20171121
  Receipt Date: 20180130
  Transmission Date: 20180508
  Serious: Yes (Other)
  Sender: FDA-Public Use
  Company Number: US-BAYER-2017-221996

PATIENT
  Age: 38 Year
  Sex: Female
  Weight: 73.92 kg

DRUGS (9)
  1. AVELOX [Suspect]
     Active Substance: MOXIFLOXACIN HYDROCHLORIDE
     Dosage: UNK
  2. CIPRO [Suspect]
     Active Substance: CIPROFLOXACIN HYDROCHLORIDE
     Indication: CYSTITIS
     Dosage: UNK
     Dates: start: 19991122
  3. CIPRO [Suspect]
     Active Substance: CIPROFLOXACIN HYDROCHLORIDE
     Indication: URINARY TRACT INFECTION
     Dosage: 500 MG, UNK
     Dates: start: 19981221, end: 19981227
  4. LEVAQUIN [Suspect]
     Active Substance: LEVOFLOXACIN
     Indication: CYSTITIS
  5. LEVOFLOXACIN. [Suspect]
     Active Substance: LEVOFLOXACIN
     Dosage: 750 MG, UNK
     Dates: start: 20150220, end: 20150301
  6. LEVAQUIN [Suspect]
     Active Substance: LEVOFLOXACIN
     Indication: URINARY TRACT INFECTION
     Dosage: 500 MG, UNK
     Dates: start: 20030324
  7. CIPRO [Suspect]
     Active Substance: CIPROFLOXACIN HYDROCHLORIDE
     Indication: URINARY TRACT INFECTION
     Dosage: UNK
     Dates: start: 19990104
  8. CIPRO [Suspect]
     Active Substance: CIPROFLOXACIN HYDROCHLORIDE
     Indication: URINARY TRACT INFECTION
     Dosage: 500 MG, UNK
     Dates: start: 19990708, end: 19990710
  9. LOVASTATIN. [Concomitant]
     Active Substance: LOVASTATIN

REACTIONS (6)
  - Burning sensation [None]
  - Paraesthesia [None]
  - Pain [None]
  - Neuropathy peripheral [Not Recovered/Not Resolved]
  - Pain [None]
  - Depression [None]

NARRATIVE: CASE EVENT DATE: 19990104
